FAERS Safety Report 9836722 (Version 2)
Quarter: 2014Q1

REPORT INFORMATION
  Report Type: Spontaneous
  Country: US (occurrence: US)
  Receive Date: 20140123
  Receipt Date: 20140304
  Transmission Date: 20141002
  Serious: Yes (Hospitalization)
  Sender: FDA-Public Use
  Company Number: GXBR2014US000524

PATIENT
  Age: 80 Year
  Sex: Male
  Weight: 89.1 kg

DRUGS (3)
  1. ENOXAPARIN SODIUM [Suspect]
     Indication: ATRIAL FIBRILLATION
     Dosage: 90 MG, Q12H
     Route: 058
     Dates: start: 20140109, end: 20140114
  2. ENOXAPARIN SODIUM [Suspect]
     Dosage: 90 MG, Q12H
     Route: 058
  3. ENOXAPARIN SODIUM [Suspect]
     Dosage: 90 MG, Q12H
     Route: 058

REACTIONS (6)
  - Shock haemorrhagic [Not Recovered/Not Resolved]
  - Retroperitoneal haematoma [Not Recovered/Not Resolved]
  - Convulsion [Not Recovered/Not Resolved]
  - Bradycardia [Not Recovered/Not Resolved]
  - Hypotension [Not Recovered/Not Resolved]
  - Cardiac arrest [Unknown]
